FAERS Safety Report 9742541 (Version 2)
Quarter: 2014Q1

REPORT INFORMATION
  Report Type: Spontaneous
  Country: US (occurrence: US)
  Receive Date: 20131210
  Receipt Date: 20140131
  Transmission Date: 20141002
  Serious: Yes (Life-Threatening)
  Sender: FDA-Public Use
  Company Number: PHEH2013US025416

PATIENT
  Age: 5 Year
  Sex: Female

DRUGS (2)
  1. METHYLPHENIDATE [Suspect]
     Dosage: UNK UKN, UNK
  2. VYVANSE [Concomitant]
     Dosage: UNK UKN, UNK

REACTIONS (3)
  - Suicidal ideation [Unknown]
  - Abnormal behaviour [Unknown]
  - Drug administered to patient of inappropriate age [Unknown]
